FAERS Safety Report 10256005 (Version 1)
Quarter: 2014Q2

REPORT INFORMATION
  Report Type: Spontaneous
  Country: JP (occurrence: JP)
  Receive Date: 20140624
  Receipt Date: 20140624
  Transmission Date: 20141212
  Serious: Yes (Other)
  Sender: FDA-Public Use
  Company Number: JP-PFIZER INC-2014167929

PATIENT
  Age: 61 Year
  Sex: Female

DRUGS (7)
  1. CADUET [Suspect]
     Dosage: UNK
     Route: 048
  2. SUGLAT [Suspect]
     Dosage: 50 MG, DAILY
     Route: 048
     Dates: start: 2014
  3. METACT LD [Concomitant]
     Dosage: UNK
     Route: 048
  4. NESINA [Concomitant]
     Dosage: 25 MG, DAILY
     Route: 048
  5. AZILVA [Concomitant]
     Dosage: 20 MG, DAILY
     Route: 048
  6. ONE-ALPHA [Concomitant]
     Dosage: UNK
     Route: 048
  7. AMARYL [Concomitant]
     Dosage: 1 MG, DAILY
     Route: 048

REACTIONS (1)
  - Herpes zoster [Unknown]
